FAERS Safety Report 5913493-5 (Version None)
Quarter: 2008Q4

REPORT INFORMATION
  Report Type: 
  Country: None (occurrence: None)
  Receive Date: 20081008
  Receipt Date: 20081008
  Transmission Date: 20090506
  Serious: Yes (Life-Threatening)
  Sender: FDA-Public Use
  Company Number: None

PATIENT
  Age: 40 Year
  Sex: Male
  Weight: 80.7403 kg

DRUGS (2)
  1. LANTUS [Suspect]
     Dosage: 27-30 UNITS 1 @ 24HRS SQ
     Route: 058
  2. HUMALOG [Suspect]
     Dosage: 5-7 UNITS PER MEAL FREQUENCY SQ
     Route: 058

REACTIONS (7)
  - CHOKING [None]
  - DEHYDRATION [None]
  - DYSPHAGIA [None]
  - EATING DISORDER [None]
  - LOSS OF CONSCIOUSNESS [None]
  - PRODUCT QUALITY ISSUE [None]
  - TONGUE DISORDER [None]
